FAERS Safety Report 23448025 (Version 1)
Quarter: 2024Q1

REPORT INFORMATION
  Report Type: Spontaneous
  Country: US (occurrence: US)
  Receive Date: 20240126
  Receipt Date: 20240126
  Transmission Date: 20240410
  Serious: No
  Sender: FDA-Public Use
  Company Number: US-INSUD PHARMA-2401US00372

PATIENT

DRUGS (1)
  1. CLOBETASOL [Suspect]
     Active Substance: CLOBETASOL
     Indication: Rash pruritic
     Dosage: UNK
     Route: 061
     Dates: start: 20240112

REACTIONS (3)
  - Drug ineffective [Not Recovered/Not Resolved]
  - Poor quality product administered [Unknown]
  - Product physical consistency issue [Unknown]

NARRATIVE: CASE EVENT DATE: 20240101
